FAERS Safety Report 11185071 (Version 3)
Quarter: 2015Q3

REPORT INFORMATION
  Report Type: Spontaneous
  Country: GB (occurrence: GB)
  Receive Date: 20150612
  Receipt Date: 20150702
  Transmission Date: 20151125
  Serious: Yes (Other)
  Sender: FDA-Public Use
  Company Number: GB-TEVA-568734ACC

PATIENT
  Age: 83 Year
  Sex: Female

DRUGS (2)
  1. ATORVASTATIN [Suspect]
     Active Substance: ATORVASTATIN
     Indication: BLOOD CHOLESTEROL
  2. EZETROL [Suspect]
     Active Substance: EZETIMIBE
     Indication: BLOOD CHOLESTEROL
     Dosage: UNK
     Route: 048
     Dates: start: 1985

REACTIONS (8)
  - Balance disorder [Unknown]
  - Cardiac operation [Unknown]
  - Memory impairment [Unknown]
  - Dyspnoea [Unknown]
  - Fall [Unknown]
  - Brain neoplasm [Unknown]
  - Joint injury [Unknown]
  - Alopecia [Unknown]
